FAERS Safety Report 6790011-3 (Version None)
Quarter: 2010Q2

REPORT INFORMATION
  Report Type: 
  Country: None (occurrence: None)
  Receive Date: 20100624
  Receipt Date: 20100609
  Transmission Date: 20101027
  Serious: Yes (Hospitalization, Other)
  Sender: FDA-Public Use
  Company Number: GB-MYLANLABS-2010S1010437

PATIENT
  Age: 78 Year
  Sex: Male
  Weight: 75 kg

DRUGS (9)
  1. ALENDRONIC ACID [Suspect]
     Indication: OSTEOPOROSIS PROPHYLAXIS
     Route: 048
  2. ADCAL-D3 [Concomitant]
     Indication: DRUG USE FOR UNKNOWN INDICATION
  3. CYCLOPHOSPHAMIDE [Concomitant]
     Indication: DRUG USE FOR UNKNOWN INDICATION
  4. LANSOPRAZOLE [Concomitant]
     Indication: DRUG USE FOR UNKNOWN INDICATION
  5. PREDNISOLONE [Concomitant]
     Indication: DRUG USE FOR UNKNOWN INDICATION
  6. SALBUTAMOL [Concomitant]
     Indication: DRUG USE FOR UNKNOWN INDICATION
  7. SERETIDE [Concomitant]
     Indication: DRUG USE FOR UNKNOWN INDICATION
  8. TIOTROPIUM BROMIDE [Concomitant]
     Indication: DRUG USE FOR UNKNOWN INDICATION
  9. URSODIOL [Concomitant]
     Indication: DRUG USE FOR UNKNOWN INDICATION

REACTIONS (2)
  - ATRIAL FIBRILLATION [None]
  - LOWER RESPIRATORY TRACT INFECTION [None]
